FAERS Safety Report 13093854 (Version 1)
Quarter: 2017Q1

REPORT INFORMATION
  Report Type: Spontaneous
  Country: US (occurrence: US)
  Receive Date: 20170106
  Receipt Date: 20170106
  Transmission Date: 20170428
  Serious: Yes (Hospitalization)
  Sender: FDA-Public Use
  Company Number: US-ALLERGAN-1700386US

PATIENT
  Sex: Male

DRUGS (1)
  1. ESCITALOPRAM OXALATE - BP [Suspect]
     Active Substance: ESCITALOPRAM OXALATE
     Indication: MATERNAL EXPOSURE TIMING UNSPECIFIED
     Dosage: 20 MG, UNK
     Route: 064

REACTIONS (14)
  - Meconium aspiration syndrome [Unknown]
  - Electrocardiogram QT prolonged [Unknown]
  - Toxicity to various agents [Unknown]
  - Umbilical cord around neck [Unknown]
  - Irritability [Unknown]
  - Lethargy [Unknown]
  - Hypopnoea [Unknown]
  - Foetal exposure during pregnancy [Unknown]
  - Posturing [Unknown]
  - Hypertonia [Unknown]
  - Crying [Unknown]
  - Tachycardia [Unknown]
  - Seizure [Unknown]
  - Bradycardia [Unknown]
